FAERS Safety Report 7464446-X (Version None)
Quarter: 2011Q2

REPORT INFORMATION
  Report Type: 
  Country: None (occurrence: None)
  Receive Date: 20110509
  Receipt Date: 20110421
  Transmission Date: 20111010
  Serious: Yes (Other)
  Sender: FDA-Public Use
  Company Number: GB-JNJFOC-20110500814

PATIENT
  Age: 54 Year
  Sex: Female

DRUGS (6)
  1. CALCICHEW-D3 [Concomitant]
  2. TROSPIUM CHLORIDE [Concomitant]
     Route: 065
  3. ZOPICLONE [Concomitant]
     Route: 065
  4. SERTRALINE [Concomitant]
  5. MIRTAZAPINE [Suspect]
     Indication: DEPRESSION
     Route: 048
  6. TRAMADOL HCL [Suspect]
     Indication: BACK PAIN
     Route: 048

REACTIONS (1)
  - LIVER FUNCTION TEST ABNORMAL [None]
